FAERS Safety Report 13689769 (Version 11)
Quarter: 2018Q1

REPORT INFORMATION
  Report Type: Report from Study
  Country: US (occurrence: US)
  Receive Date: 20170626
  Receipt Date: 20180202
  Transmission Date: 20180508
  Serious: Yes (Hospitalization, Other)
  Sender: FDA-Public Use
  Company Number: US-BAYER-2017-068729

PATIENT
  Age: 48 Year
  Sex: Female
  Weight: 112.93 kg

DRUGS (10)
  1. ADEMPAS [Suspect]
     Active Substance: RIOCIGUAT
     Indication: PULMONARY HYPERTENSION
     Dosage: UNK
     Dates: start: 20151110
  2. ADEMPAS [Suspect]
     Active Substance: RIOCIGUAT
     Indication: PULMONARY HYPERTENSION
     Dosage: 2.5 MG, TID
     Route: 048
  3. ADEMPAS [Suspect]
     Active Substance: RIOCIGUAT
     Indication: PULMONARY HYPERTENSION
     Dosage: 2.5 MG, TID
     Route: 048
  4. ADEMPAS [Suspect]
     Active Substance: RIOCIGUAT
     Indication: PULMONARY HYPERTENSION
     Dosage: 2.5 MG, TID
  5. OPSUMIT [Concomitant]
     Active Substance: MACITENTAN
     Dosage: UNK
  6. ADEMPAS [Suspect]
     Active Substance: RIOCIGUAT
     Indication: PULMONARY HYPERTENSION
     Dosage: 2.5 MG, TID
     Route: 048
     Dates: start: 20151110
  7. REMODULIN [Concomitant]
     Active Substance: TREPROSTINIL
     Dosage: UNK
  8. ADEMPAS [Suspect]
     Active Substance: RIOCIGUAT
     Indication: PULMONARY HYPERTENSION
     Dosage: 2.5 MG, TID
     Route: 048
  9. ADEMPAS [Suspect]
     Active Substance: RIOCIGUAT
     Indication: PULMONARY HYPERTENSION
     Dosage: 2.5 MG, TID
     Route: 048
  10. ADEMPAS [Suspect]
     Active Substance: RIOCIGUAT
     Indication: PULMONARY HYPERTENSION
     Dosage: 2.5 MG, TID

REACTIONS (35)
  - Pulmonary thrombosis [Unknown]
  - Abdominal pain upper [Not Recovered/Not Resolved]
  - Device dislocation [Unknown]
  - Asthenia [None]
  - Malaise [Unknown]
  - Diarrhoea [Unknown]
  - Gastric disorder [Unknown]
  - Vomiting [Not Recovered/Not Resolved]
  - Fluid overload [Unknown]
  - Influenza like illness [Unknown]
  - Malaise [None]
  - Pulmonary arterial hypertension [Unknown]
  - Abdominal pain upper [None]
  - Dyspnoea [Unknown]
  - Adverse drug reaction [Unknown]
  - Influenza like illness [Not Recovered/Not Resolved]
  - Feeling abnormal [Unknown]
  - Medical procedure [None]
  - Palpitations [Unknown]
  - Abdominal pain upper [Unknown]
  - Oedema [Unknown]
  - Decreased appetite [Not Recovered/Not Resolved]
  - Heart rate decreased [Recovering/Resolving]
  - Pain [None]
  - Vomiting [Unknown]
  - Nausea [Not Recovered/Not Resolved]
  - Dyspnoea [None]
  - Dyspnoea exertional [Unknown]
  - Arthralgia [Unknown]
  - Pain [Unknown]
  - Device dislocation [None]
  - Hospitalisation [Unknown]
  - Pain in extremity [Not Recovered/Not Resolved]
  - Fatigue [Not Recovered/Not Resolved]
  - Lethargy [Unknown]

NARRATIVE: CASE EVENT DATE: 2016
